FAERS Safety Report 19109536 (Version 2)
Quarter: 2021Q2

REPORT INFORMATION
  Report Type: Report from Study
  Country: None (occurrence: US)
  Receive Date: 20210409
  Receipt Date: 20210529
  Transmission Date: 20210717
  Serious: Yes (Other)
  Sender: FDA-Public Use
  Company Number: US-ABBVIE-21K-163-3847683-00

PATIENT
  Age: 73 Year
  Sex: Female
  Weight: 80.81 kg

DRUGS (4)
  1. COVID?19 VACCINE NOS. [Concomitant]
     Active Substance: COVID-19 VACCINE NOS
     Indication: COVID-19 IMMUNISATION
     Dosage: MODERNA
     Route: 030
     Dates: start: 202101, end: 202101
  2. COVID?19 VACCINE NOS. [Concomitant]
     Active Substance: COVID-19 VACCINE NOS
     Dosage: MODERNA
     Route: 030
     Dates: start: 202102, end: 202102
  3. HUMIRA [Suspect]
     Active Substance: ADALIMUMAB
     Indication: PSORIASIS
     Route: 058
  4. HUMIRA [Suspect]
     Active Substance: ADALIMUMAB
     Indication: CROHN^S DISEASE

REACTIONS (5)
  - Stoma site haemorrhage [Recovered/Resolved]
  - Mood altered [Unknown]
  - Stoma creation [Recovered/Resolved]
  - Frustration tolerance decreased [Unknown]
  - Ileostomy [Unknown]

NARRATIVE: CASE EVENT DATE: 202104
